FAERS Safety Report 7940593-0 (Version None)
Quarter: 2011Q4

REPORT INFORMATION
  Report Type: 
  Country: None (occurrence: None)
  Receive Date: 20111114
  Receipt Date: 20110202
  Transmission Date: 20120403
  Serious: Yes (Hospitalization)
  Sender: FDA-Public Use
  Company Number: 2010S1001685

PATIENT
  Age: 76 Year
  Sex: Female
  Weight: 60 kg

DRUGS (11)
  1. INSULIN [Concomitant]
  2. DARBEPOETIN ALFA [Concomitant]
  3. REMERON [Concomitant]
  4. CUBICIN [Suspect]
     Indication: ENTEROCOCCAL BACTERAEMIA
     Dosage: 8.3 MG/KG;TIW;IV
     Route: 042
     Dates: start: 20101005, end: 20101030
  5. PLAVIX [Concomitant]
  6. TRENTAL [Concomitant]
  7. SIMVASTATIN [Concomitant]
  8. AMLODIPINE [Concomitant]
  9. ASPIRIN [Concomitant]
  10. COREG [Concomitant]
  11. VICODIN [Concomitant]

REACTIONS (4)
  - EOSINOPHIL COUNT INCREASED [None]
  - RESPIRATORY ARREST [None]
  - RESPIRATORY FAILURE [None]
  - EOSINOPHILIC PNEUMONIA [None]
